FAERS Safety Report 8403322-2 (Version None)
Quarter: 2012Q2

REPORT INFORMATION
  Report Type: 
  Country: None (occurrence: None)
  Receive Date: 20120601
  Receipt Date: 20120523
  Transmission Date: 20120825
  Serious: Yes (Hospitalization)
  Sender: FDA-Public Use
  Company Number: BR-ABBOTT-12P-020-0913794-00

PATIENT
  Sex: Female
  Weight: 72 kg

DRUGS (6)
  1. DIPIRONE [Concomitant]
     Indication: HEADACHE
  2. ATAZANAVIR SULFATE [Concomitant]
     Indication: HIV INFECTION
     Route: 048
     Dates: start: 20110915, end: 20120202
  3. LAMIVUDINE + ZIDOVUDINE [Concomitant]
     Indication: HIV INFECTION
     Dosage: 150/300 MG
     Route: 048
     Dates: start: 20080301, end: 20100518
  4. LAMIVUDINE + ZIDOVUDINE [Concomitant]
     Dosage: 150/300 MG
     Route: 048
     Dates: start: 20110915, end: 20120306
  5. ACETAMINOPHEN [Concomitant]
     Indication: HEADACHE
  6. KALETRA [Suspect]
     Indication: HIV INFECTION
     Dosage: 100/33MG
     Route: 048
     Dates: start: 20120302

REACTIONS (1)
  - ABORTION SPONTANEOUS [None]
